FAERS Safety Report 7968812-5 (Version None)
Quarter: 2011Q4

REPORT INFORMATION
  Report Type: 
  Country: None (occurrence: None)
  Receive Date: 20111208
  Receipt Date: 20111124
  Transmission Date: 20120403
  Serious: Yes (Death, Hospitalization, Congenital Anomaly)
  Sender: FDA-Public Use
  Company Number: 1000024563

PATIENT

DRUGS (6)
  1. ESCITALOPRAM OXALATE [Suspect]
     Dosage: 20 MG (20 MG, 1 IN 1 D), TRANSPLACENTAL
     Route: 064
     Dates: start: 20101120
  2. PYRIDOXINE HCL [Concomitant]
  3. ALPRAZOLAM [Concomitant]
  4. RANITIDINE [Concomitant]
  5. MATERNA (MATERNA) (MATERNA) [Concomitant]
  6. DOXYLAMINE SUCCINATE (DOXYLAMINE SUCCINATE) (DOXYLAMINE SUCCINATE) [Concomitant]

REACTIONS (9)
  - RENAL FUSION ANOMALY [None]
  - MATERNAL DRUGS AFFECTING FOETUS [None]
  - ABORTION INDUCED [None]
  - CONGENITAL BLADDER ANOMALY [None]
  - CONGENITAL RENAL CYST [None]
  - CONGENITAL SPONDYLOLYSIS [None]
  - OLIGOHYDRAMNIOS [None]
  - SINGLE UMBILICAL ARTERY [None]
  - RENAL DYSPLASIA [None]
